FAERS Safety Report 9209123 (Version 1)
Quarter: 2013Q2

REPORT INFORMATION
  Report Type: Spontaneous
  Country: CO (occurrence: CO)
  Receive Date: 20130404
  Receipt Date: 20130404
  Transmission Date: 20140414
  Serious: Yes (Death, Hospitalization)
  Sender: FDA-Public Use
  Company Number: PHHY2013CO032026

PATIENT
  Age: 33 Year
  Sex: Female

DRUGS (3)
  1. SANDOSTATIN LAR [Suspect]
     Indication: NEUROENDOCRINE TUMOUR
     Dosage: 20 MG, MONTHLY
     Route: 030
  2. SANDOSTATIN LAR [Suspect]
     Dosage: 40 MG, UNK
     Route: 030
     Dates: start: 20130222
  3. SANDOSTATIN (OCTREOTIDE ACETATE) [Suspect]
     Indication: NEUROENDOCRINE TUMOUR
     Dosage: 0.1 MG, EVERY 12 HOURS
     Route: 058
     Dates: start: 20130209, end: 20130224

REACTIONS (4)
  - General physical health deterioration [Fatal]
  - Hypophagia [Fatal]
  - Respiratory distress [Fatal]
  - Oxygen saturation decreased [Fatal]
